FAERS Safety Report 10695291 (Version 2)
Quarter: 2015Q1

REPORT INFORMATION
  Report Type: Spontaneous
  Country: JP (occurrence: None)
  Receive Date: 20150105
  Receipt Date: 20150205
  Transmission Date: 20150721
  Serious: Yes (Hospitalization)
  Sender: FDA-Public Use
  Company Number: 2014FE02741

PATIENT
  Age: 85 Year
  Sex: Male
  Weight: 72 kg

DRUGS (8)
  1. BROTIZOLAM (BROTIZOLAM) [Concomitant]
  2. BAYASPIRIN (ACETYLSALICYLIC ACID)TABLET [Concomitant]
  3. LACTEC (CALCIUM CHLORIDE, POTASSIUM CHLORIDE, SODIUM CHLORIDE, SODIUM LACTATE) [Concomitant]
  4. URIEF (SILODOSIN) [Concomitant]
  5. ASPIRIN (ACETYLSALICYLIC ACID) [Concomitant]
     Active Substance: ASPIRIN
  6. DEGARELIX [Suspect]
     Active Substance: DEGARELIX
     Dosage: 240 MG, ONCE/SINGLE
     Route: 058
     Dates: start: 20131105, end: 20131105
  7. ARGATROBAN (ARGATROBAN) INJECTION [Concomitant]
  8. SOLDEM 3A (CARBOHYDRATES NOS, POTASSIUM CHLORIDR, SODIUM LACTATE) INJECTION [Concomitant]

REACTIONS (19)
  - Sinus node dysfunction [None]
  - Feeling hot [None]
  - Sinus arrest [None]
  - Fall [None]
  - Atrioventricular block first degree [None]
  - Cerebral artery thrombosis [None]
  - Bundle branch block right [None]
  - Basilar artery stenosis [None]
  - Myocardial fibrosis [None]
  - Transient ischaemic attack [None]
  - Loss of consciousness [None]
  - Brain natriuretic peptide increased [None]
  - Dizziness [None]
  - Syncope [None]
  - Fibrin D dimer increased [None]
  - Bradycardia [None]
  - Renal impairment [None]
  - Atrial fibrillation [None]
  - Electrocardiogram QT prolonged [None]

NARRATIVE: CASE EVENT DATE: 20140921
